FAERS Safety Report 24443828 (Version 2)
Quarter: 2024Q4

REPORT INFORMATION
  Report Type: Report from Study
  Country: US (occurrence: US)
  Receive Date: 20241016
  Receipt Date: 20241017
  Transmission Date: 20250115
  Serious: No
  Sender: ROCHE
  Company Number: US-ROCHE-2171038

PATIENT
  Age: 62 Year
  Sex: Female

DRUGS (2)
  1. RITUXAN [Suspect]
     Active Substance: RITUXIMAB
     Indication: Immune thrombocytopenia
     Dosage: ON 15/AUG/2018, NEXT THERAPY WITH RITUXIMAB WAS PLANNED.
     Route: 065
  2. RITUXAN [Suspect]
     Active Substance: RITUXIMAB
     Indication: Immune thrombocytopenia
     Dosage: 100, 500 MG SINGLE-USE VIAL.ON 02/MAY/2024, SHE RECEIVED 750MG VIAL OF RITUXIMAB.DATE OF SERVICE: 24
     Route: 042
     Dates: start: 20220923, end: 20230923

REACTIONS (3)
  - Off label use [Unknown]
  - No adverse event [Unknown]
  - Product prescribing error [Unknown]
